FAERS Safety Report 6885329-X (Version None)
Quarter: 2010Q3

REPORT INFORMATION
  Report Type: 
  Country: None (occurrence: None)
  Receive Date: 20100729
  Receipt Date: 20100729
  Transmission Date: 20110219
  Serious: Yes (Other)
  Sender: FDA-Public Use
  Company Number: None

PATIENT
  Age: 19 Year
  Sex: Female
  Weight: 56.6996 kg

DRUGS (2)
  1. GIANVI 3/.02MG [Suspect]
     Indication: CONTRACEPTION
     Dosage: 3/0.02MG ONCE DAILY PO
     Route: 048
     Dates: start: 20100618, end: 20100619
  2. GIANVI 3/.02MG [Suspect]
     Indication: POLYCYSTIC OVARIES
     Dosage: 3/0.02MG ONCE DAILY PO
     Route: 048
     Dates: start: 20100618, end: 20100619

REACTIONS (8)
  - APPARENT DEATH [None]
  - HEADACHE [None]
  - METRORRHAGIA [None]
  - MOVEMENT DISORDER [None]
  - MUSCLE SPASMS [None]
  - MYALGIA [None]
  - PRODUCT QUALITY ISSUE [None]
  - PRODUCT SUBSTITUTION ISSUE [None]
